FAERS Safety Report 14593222 (Version 3)
Quarter: 2018Q1

REPORT INFORMATION
  Report Type: Spontaneous
  Country: US (occurrence: US)
  Receive Date: 20180302
  Receipt Date: 20180321
  Transmission Date: 20180509
  Serious: No
  Sender: FDA-Public Use
  Company Number: US-PFIZER INC-2018084776

PATIENT
  Age: 48 Year
  Sex: Male
  Weight: 97.52 kg

DRUGS (5)
  1. EUCRISA [Suspect]
     Active Substance: CRISABOROLE
     Indication: ECZEMA
  2. NYSTATIN. [Concomitant]
     Active Substance: NYSTATIN
     Indication: CANDIDA INFECTION
     Dosage: UNK, POWDER
     Route: 061
     Dates: start: 20180219, end: 20180226
  3. EUCRISA [Suspect]
     Active Substance: CRISABOROLE
     Indication: SEBORRHOEIC DERMATITIS
     Dosage: TWICE DAILY (APPLY ENOUGH TO COVER AREA TO FOREHEAD AND GENITALIA)
     Route: 061
     Dates: start: 20180225, end: 20180227
  4. EUCRISA [Suspect]
     Active Substance: CRISABOROLE
     Indication: INTERTRIGO
  5. NYSTATIN. [Concomitant]
     Active Substance: NYSTATIN
     Indication: FUNGAL INFECTION
     Dosage: UNK, CREAM
     Route: 061
     Dates: start: 20180219, end: 20180226

REACTIONS (6)
  - Application site erythema [Not Recovered/Not Resolved]
  - Eczema [Recovered/Resolved]
  - Condition aggravated [Recovered/Resolved]
  - Application site pain [Unknown]
  - Skin tightness [Not Recovered/Not Resolved]
  - Application site reaction [Recovered/Resolved]

NARRATIVE: CASE EVENT DATE: 201802
